FAERS Safety Report 6254888-2 (Version None)
Quarter: 2009Q3

REPORT INFORMATION
  Report Type: 
  Country: None (occurrence: None)
  Receive Date: 20090702
  Receipt Date: 20090626
  Transmission Date: 20100115
  Serious: Yes (Other)
  Sender: FDA-Public Use
  Company Number: US-AMGEN-STX350391

PATIENT
  Sex: Female
  Weight: 108.5 kg

DRUGS (18)
  1. SENSIPAR [Suspect]
     Indication: HYPERPARATHYROIDISM SECONDARY
     Dates: start: 20081222
  2. EPOGEN [Suspect]
     Indication: DIALYSIS
     Dates: start: 20070312
  3. AMBIEN [Concomitant]
     Dates: start: 20071024
  4. ATENOLOL [Concomitant]
     Dates: start: 20080407
  5. CALCITRIOL [Concomitant]
  6. CARISOPRODOL [Concomitant]
     Dates: start: 20071024
  7. CLARINEX [Concomitant]
     Dates: start: 20071024
  8. FUROSEMIDE INTENSOL [Concomitant]
     Dates: start: 20071024
  9. HUMALOG [Concomitant]
     Dates: start: 20071024
  10. LANTUS [Concomitant]
     Dates: start: 20071024
  11. LEVOXYL [Concomitant]
     Dates: start: 20071024
  12. LOTENSIN [Concomitant]
     Dates: start: 20090212
  13. NORVASC [Concomitant]
     Dates: start: 20090112
  14. RENAGEL [Concomitant]
  15. SINGULAIR [Concomitant]
  16. HYDROCODONE BITARTRATE [Concomitant]
     Dates: start: 20071024
  17. INDOMETHACIN [Concomitant]
     Dates: start: 20080507
  18. LIPITOR [Concomitant]
     Dates: start: 20071024

REACTIONS (4)
  - NAUSEA [None]
  - VISION BLURRED [None]
  - VISUAL IMPAIRMENT [None]
  - VOMITING [None]
